FAERS Safety Report 7483437-6 (Version None)
Quarter: 2011Q2

REPORT INFORMATION
  Report Type: 
  Country: None (occurrence: None)
  Receive Date: 20110517
  Receipt Date: 20110510
  Transmission Date: 20111010
  Serious: Yes (Life-Threatening, Hospitalization)
  Sender: FDA-Public Use
  Company Number: DE-ELI_LILLY_AND_COMPANY-DE201104007996

PATIENT
  Age: 44 Year
  Sex: Male
  Weight: 70 kg

DRUGS (8)
  1. SIMVASTATIN [Concomitant]
     Dosage: 40 MG, UNKNOWN
     Route: 065
  2. ASPIRIN [Concomitant]
     Dosage: 100 MG, UNKNOWN
     Route: 065
  3. RAMIPRIL [Concomitant]
     Dosage: 5 MG, UNKNOWN
     Route: 065
  4. EFFIENT [Suspect]
     Dosage: 10 MG, (MAINTENANCE DOSE)
     Route: 048
     Dates: start: 20110422
  5. HEPARIN [Concomitant]
     Dosage: 1000 IE/H, UNKNOWN
     Route: 042
  6. EFFIENT [Suspect]
     Indication: STENT PLACEMENT
     Dosage: 60 MG, (LOADING DOSE)
     Route: 048
     Dates: start: 20110421, end: 20110421
  7. METOPROLOL SUCCINATE [Concomitant]
     Dosage: 95 MG, UNKNOWN
     Route: 065
  8. PANTOPRAZOLE [Concomitant]
     Dosage: 40 MG, UNKNOWN
     Route: 065

REACTIONS (1)
  - THROMBOSIS IN DEVICE [None]
